FAERS Safety Report 6775638-7 (Version None)
Quarter: 2010Q2

REPORT INFORMATION
  Report Type: 
  Country: None (occurrence: None)
  Receive Date: 20100617
  Receipt Date: 20100610
  Transmission Date: 20101027
  Serious: Yes (Other)
  Sender: FDA-Public Use
  Company Number: AU-ABBOTT-10P-008-0646858-00

PATIENT
  Sex: Female

DRUGS (1)
  1. REDUCTIL [Suspect]
     Indication: WEIGHT DECREASED

REACTIONS (3)
  - BLOOD PRESSURE INCREASED [None]
  - HOT FLUSH [None]
  - PALPITATIONS [None]
